FAERS Safety Report 5494820-2 (Version None)
Quarter: 2007Q4

REPORT INFORMATION
  Report Type: 
  Country: None (occurrence: None)
  Receive Date: 20071015
  Receipt Date: 20070228
  Transmission Date: 20080405
  Serious: Yes (Other)
  Sender: FDA-Public Use
  Company Number: S06-USA-02748-02

PATIENT
  Sex: Male
  Weight: 2.6944 kg

DRUGS (8)
  1. LEXAPRO [Suspect]
     Dosage: 10 MG QD TRANSPLACENTAL
     Route: 064
     Dates: start: 20060426, end: 20070126
  2. GEODON [Concomitant]
  3. TRILEPTAL [Concomitant]
  4. MACRODANTIN [Concomitant]
  5. FLAGYL [Concomitant]
  6. FES04 (FERROUS SULFATE) [Concomitant]
  7. EPIDURAL (NOS) [Concomitant]
  8. TERAZOL 7 (TERCONAZOLE) [Concomitant]

REACTIONS (3)
  - AGITATION NEONATAL [None]
  - HYPOGLYCAEMIA [None]
  - HYPOTONIA [None]
